FAERS Safety Report 26207859 (Version 1)
Quarter: 2025Q4

REPORT INFORMATION
  Report Type: Report from Study
  Country: GB (occurrence: GB)
  Receive Date: 20251229
  Receipt Date: 20251229
  Transmission Date: 20260117
  Serious: Yes (Other)
  Sender: MERCK KGAA
  Company Number: GB-Merck Healthcare KGaA-2025066004

PATIENT
  Age: 53 Year
  Sex: Female

DRUGS (2)
  1. MAVENCLAD [Suspect]
     Active Substance: CLADRIBINE
     Indication: Multiple sclerosis
     Dosage: YEAR ONE WEEK ONE THERAPY AT A DOSE OF 2 TABLETS ON DAYS 1 TO 4 AND 1 TABLETS ON DAY 5
     Dates: start: 20251020
  2. MAVENCLAD [Suspect]
     Active Substance: CLADRIBINE
     Dosage: YEAR ONE WEEK FIVE THERAPY AT A DOSE OF 2 TABLETS ON DAYS 1 TO 4 AND 1 TABLETS ON DAY 5
     Dates: start: 20251117

REACTIONS (1)
  - Lower respiratory tract infection [Recovering/Resolving]

NARRATIVE: CASE EVENT DATE: 20251214
